FAERS Safety Report 23789291 (Version 4)
Quarter: 2024Q2

REPORT INFORMATION
  Report Type: Spontaneous
  Country: GB (occurrence: GB)
  Receive Date: 20240426
  Receipt Date: 20240617
  Transmission Date: 20240716
  Serious: Yes (Hospitalization, Other)
  Sender: FDA-Public Use
  Company Number: GB-ANIPHARMA-2024-UK-000088

PATIENT
  Age: 77 Year
  Sex: Female

DRUGS (10)
  1. CANDESARTAN [Suspect]
     Active Substance: CANDESARTAN
     Indication: Product used for unknown indication
  2. CYCLOPHOSPHAMIDE [Suspect]
     Active Substance: CYCLOPHOSPHAMIDE
     Dosage: UNK / DOSE TEXT: 400 MILLIGRAM/SQ. METER
     Route: 050
  3. DOXORUBICIN [Suspect]
     Active Substance: DOXORUBICIN
     Dosage: DOSE TEXT: 25 MILLIGRAM/SQ. METER / UNK
     Route: 050
  4. PREDNISONE [Suspect]
     Active Substance: PREDNISONE
     Route: 050
  5. BRENTUXIMAB [Suspect]
     Active Substance: BRENTUXIMAB
  6. ALDOSTERONE [Concomitant]
     Active Substance: ALDOSTERONE
  7. FUROSEMIDE [Suspect]
     Active Substance: FUROSEMIDE
     Route: 050
  8. PREDNISOLONE [Suspect]
     Active Substance: PREDNISOLONE
  9. RAMIPRIL [Suspect]
     Active Substance: RAMIPRIL
  10. DAPAGLIFLOZIN [Concomitant]
     Active Substance: DAPAGLIFLOZIN
     Route: 050

REACTIONS (8)
  - Confusional state [Recovered/Resolved]
  - C-reactive protein abnormal [Unknown]
  - Cellulitis [Recovered/Resolved]
  - Oedema peripheral [Recovering/Resolving]
  - Cardiac failure [Unknown]
  - Dyspnoea exertional [Unknown]
  - Off label use [Unknown]
  - Contraindicated product administered [Unknown]
